FAERS Safety Report 8885289 (Version 1)
Quarter: 2012Q4

REPORT INFORMATION
  Report Type: Report from Study
  Country: CA (occurrence: CA)
  Receive Date: 20121105
  Receipt Date: 20121105
  Transmission Date: 20130627
  Serious: Yes (Hospitalization)
  Sender: FDA-Public Use
  Company Number: CA-JNJFOC-20121012630

PATIENT
  Age: 17 Year
  Sex: Male
  Weight: 83.6 kg

DRUGS (2)
  1. REMICADE [Suspect]
     Indication: CROHN^S DISEASE
     Route: 042
     Dates: start: 20120808
  2. IMURAN [Concomitant]
     Route: 048

REACTIONS (2)
  - Crohn^s disease [Unknown]
  - Rash [Unknown]
